FAERS Safety Report 9844915 (Version 1)
Quarter: 2014Q1

REPORT INFORMATION
  Report Type: Spontaneous
  Country: US (occurrence: None)
  Receive Date: 20140123
  Receipt Date: 20140123
  Transmission Date: 20141002
  Serious: Yes (Disabling)
  Sender: FDA-Public Use
  Company Number: None

PATIENT
  Age: 57 Year
  Sex: Male
  Weight: 82.56 kg

DRUGS (2)
  1. LEVOFLOXACIN [Suspect]
  2. CIPROFLAXIN [Suspect]

REACTIONS (8)
  - Muscular weakness [None]
  - Paraesthesia [None]
  - Anxiety [None]
  - Vision blurred [None]
  - Palpitations [None]
  - Feeling abnormal [None]
  - Gait disturbance [None]
  - Drug ineffective [None]
